FAERS Safety Report 6574097-7 (Version None)
Quarter: 2010Q1

REPORT INFORMATION
  Report Type: 
  Country: None (occurrence: None)
  Receive Date: 20100208
  Receipt Date: 20100201
  Transmission Date: 20100710
  Serious: Yes (Other)
  Sender: FDA-Public Use
  Company Number: GR-BAYER-201014323GPV

PATIENT
  Age: 43 Year
  Sex: Female
  Weight: 63 kg

DRUGS (1)
  1. AVELOX [Suspect]
     Indication: RESPIRATORY TRACT INFECTION
     Dosage: TOTAL DAILY DOSE: 400 MG  UNIT DOSE: 400 MG
     Route: 048
     Dates: start: 20091124, end: 20091124

REACTIONS (7)
  - ANXIETY [None]
  - DIARRHOEA [None]
  - DIZZINESS [None]
  - PHOBIA [None]
  - SUICIDAL IDEATION [None]
  - TINNITUS [None]
  - VOMITING [None]
